FAERS Safety Report 18112893 (Version 2)
Quarter: 2020Q3

REPORT INFORMATION
  Report Type: Spontaneous
  Country: CA (occurrence: CA)
  Receive Date: 20200805
  Receipt Date: 20200922
  Transmission Date: 20201103
  Serious: Yes (Other)
  Sender: FDA-Public Use
  Company Number: CA-ACCORD-193838

PATIENT
  Age: 6 Year
  Sex: Female

DRUGS (7)
  1. MYCOPHENOLIC ACID. [Suspect]
     Active Substance: MYCOPHENOLIC ACID
     Indication: IMMUNOSUPPRESSION
     Route: 065
  2. PREDNISONE. [Suspect]
     Active Substance: PREDNISONE
     Indication: IMMUNOSUPPRESSION
     Dosage: NOT SPECIFIED
     Route: 065
  3. FOSCARNET [Concomitant]
     Active Substance: FOSCARNET
  4. GANCICLOVIR. [Suspect]
     Active Substance: GANCICLOVIR
     Indication: CYTOMEGALOVIRUS INFECTION
     Dosage: 2 EVERY 1 DAYS
     Route: 042
  5. TACROLIMUS. [Suspect]
     Active Substance: TACROLIMUS
     Indication: IMMUNOSUPPRESSION
     Route: 048
  6. CYTOGAM [Suspect]
     Active Substance: HUMAN CYTOMEGALOVIRUS IMMUNE GLOBULIN
     Indication: CYTOMEGALOVIRUS INFECTION
     Dosage: SOLUTION INTRAVENOUS, 2 EVERY 1 WEEKS
     Route: 065
  7. GANCICLOVIR. [Suspect]
     Active Substance: GANCICLOVIR
     Indication: CYTOMEGALOVIRUS INFECTION
     Dosage: POWDER FOR SOLUTION INTRAVENOUS, 2 EVERY 1 DAYS
     Route: 065

REACTIONS (4)
  - Cytomegalovirus infection [Unknown]
  - Drug resistance [Unknown]
  - Gastroenteritis [Unknown]
  - Product use issue [Unknown]
